FAERS Safety Report 12371946 (Version 1)
Quarter: 2016Q2

REPORT INFORMATION
  Report Type: Spontaneous
  Country: FR (occurrence: FR)
  Receive Date: 20160516
  Receipt Date: 20160516
  Transmission Date: 20160815
  Serious: Yes (Hospitalization)
  Sender: FDA-Public Use
  Company Number: FR-ELI_LILLY_AND_COMPANY-FR201605003030

PATIENT
  Sex: Female
  Weight: 57 kg

DRUGS (4)
  1. ALIMTA [Suspect]
     Active Substance: PEMETREXED DISODIUM
     Indication: LUNG ADENOCARCINOMA STAGE III
     Dosage: 775 MG, UNKNOWN
     Route: 042
     Dates: start: 20160125, end: 20160307
  2. CARBOPLATIN HOSPIRA [Suspect]
     Active Substance: CARBOPLATIN
     Dosage: 420 MG, UNKNOWN
     Route: 042
  3. AVASTIN                            /00848101/ [Concomitant]
     Active Substance: SIMVASTATIN
     Indication: LUNG ADENOCARCINOMA STAGE III
     Dosage: UNK, UNKNOWN
     Route: 042
     Dates: start: 20160215
  4. CARBOPLATIN HOSPIRA [Suspect]
     Active Substance: CARBOPLATIN
     Indication: LUNG ADENOCARCINOMA STAGE III
     Dosage: UNK, UNKNOWN
     Route: 042
     Dates: start: 20160125, end: 20160307

REACTIONS (4)
  - Drug intolerance [Unknown]
  - Pulmonary fibrosis [Not Recovered/Not Resolved]
  - Scleroderma [Not Recovered/Not Resolved]
  - Condition aggravated [Unknown]
